FAERS Safety Report 9752028 (Version 1)
Quarter: 2013Q4

REPORT INFORMATION
  Report Type: Spontaneous
  Country: US (occurrence: None)
  Receive Date: 20131211
  Receipt Date: 20131211
  Transmission Date: 20140711
  Serious: Yes (Other)
  Sender: FDA-Public Use
  Company Number: None

PATIENT
  Age: 54 Year
  Sex: Female
  Weight: 82.56 kg

DRUGS (1)
  1. CYMBALTA 20MG ELI LILLY [Suspect]
     Indication: DEPRESSION
     Dosage: 1 PILL
     Route: 048
     Dates: end: 20131030

REACTIONS (1)
  - Electrocardiogram QT prolonged [None]
